FAERS Safety Report 7777544-8 (Version None)
Quarter: 2011Q3

REPORT INFORMATION
  Report Type: 
  Country: None (occurrence: None)
  Receive Date: 20110922
  Receipt Date: 20110906
  Transmission Date: 20111222
  Serious: Yes (Other)
  Sender: FDA-Public Use
  Company Number: FK201101941

PATIENT
  Sex: Female

DRUGS (2)
  1. FLUOROURACIL [Suspect]
     Indication: LIP AND/OR ORAL CAVITY CANCER
     Dosage: 60-70 MG/M2
  2. CISPLATIN [Suspect]
     Indication: LIP AND/OR ORAL CAVITY CANCER
     Dosage: 600-700 MG/M2

REACTIONS (4)
  - DISSEMINATED INTRAVASCULAR COAGULATION [None]
  - BONE MARROW FAILURE [None]
  - SEPSIS [None]
  - NAUSEA [None]
